FAERS Safety Report 4299279-9 (Version None)
Quarter: 2004Q1

REPORT INFORMATION
  Report Type: 
  Country: None (occurrence: None)
  Receive Date: 20040217
  Receipt Date: 20040217
  Transmission Date: 20041129
  Serious: Yes (Death, Hospitalization)
  Sender: FDA-Public Use
  Company Number: None

PATIENT
  Sex: Female
  Weight: 69 kg

DRUGS (1)
  1. GEMCITABINE [Suspect]
     Indication: PANCREATIC CARCINOMA
     Dosage: 1500 MG WEEKLY X 3
     Dates: start: 20040122, end: 20040129

REACTIONS (3)
  - CENTRAL LINE INFECTION [None]
  - CONFUSIONAL STATE [None]
  - SEPSIS [None]
